FAERS Safety Report 9552372 (Version 1)
Quarter: 2013Q3

REPORT INFORMATION
  Report Type: Spontaneous
  Country: US (occurrence: US)
  Receive Date: 20130925
  Receipt Date: 20130925
  Transmission Date: 20140515
  Serious: Yes (Death)
  Sender: FDA-Public Use
  Company Number: US-ASTELLAS-2013US010043

PATIENT
  Age: 70 Year
  Sex: Male

DRUGS (1)
  1. PROGRAF [Suspect]
     Indication: LUNG TRANSPLANT
     Dosage: 2 MG AM AND 1.5 MG PM
     Route: 048
     Dates: start: 20120920, end: 20130911

REACTIONS (2)
  - Off label use [Unknown]
  - Death [Fatal]
